FAERS Safety Report 14561115 (Version 2)
Quarter: 2018Q1

REPORT INFORMATION
  Report Type: Report from Study
  Country: ES (occurrence: ES)
  Receive Date: 20180222
  Receipt Date: 20180330
  Transmission Date: 20180509
  Serious: Yes (Hospitalization)
  Sender: FDA-Public Use
  Company Number: ES-ROCHE-2071846

PATIENT
  Age: 63 Year
  Sex: Male
  Weight: 60.4 kg

DRUGS (6)
  1. ALLOPURINOL. [Concomitant]
     Active Substance: ALLOPURINOL
     Route: 065
     Dates: start: 20180207
  2. ATEZOLIZUMAB. [Suspect]
     Active Substance: ATEZOLIZUMAB
     Indication: NEOPLASM MALIGNANT
     Dosage: LAST DOSE PRIOR TO EVENT ONSET 06/FEB/2018
     Route: 042
     Dates: start: 20180206
  3. RANITIDINE. [Concomitant]
     Active Substance: RANITIDINE
     Route: 065
     Dates: start: 20180207
  4. RO 6958688 (T-CELL BISPECIFIC MONOCLONAL ANTIBODY) [Suspect]
     Active Substance: INVESTIGATIONAL PRODUCT
     Indication: NEOPLASM MALIGNANT
     Dosage: LAST DOSE PRIOR TO EVENT ONSET 06/FEB/2018, 40 MG?DOSE ESCALATION
     Route: 042
     Dates: start: 20180206
  5. KREON [Concomitant]
     Active Substance: PANCRELIPASE
     Route: 065
     Dates: start: 20180207
  6. ENOXAPARINA [Concomitant]
     Active Substance: ENOXAPARIN
     Route: 065
     Dates: start: 20180207

REACTIONS (1)
  - Hypotension [Recovered/Resolved]

NARRATIVE: CASE EVENT DATE: 20180207
